FAERS Safety Report 24107627 (Version 4)
Quarter: 2025Q2

REPORT INFORMATION
  Report Type: Report from Study
  Country: IT (occurrence: IT)
  Receive Date: 20240718
  Receipt Date: 20250510
  Transmission Date: 20250717
  Serious: Yes (Other)
  Sender: CELLTRION
  Company Number: IT-CELLTRION INC.-2024IT017026

PATIENT

DRUGS (6)
  1. BEVACIZUMAB [Suspect]
     Active Substance: BEVACIZUMAB
     Indication: Age-related macular degeneration
     Route: 031
     Dates: start: 20230126, end: 20230126
  2. BEVACIZUMAB [Suspect]
     Active Substance: BEVACIZUMAB
     Route: 031
     Dates: start: 20230323, end: 20230323
  3. BEVACIZUMAB [Suspect]
     Active Substance: BEVACIZUMAB
     Route: 031
     Dates: start: 20230518, end: 20230518
  4. BEVACIZUMAB [Suspect]
     Active Substance: BEVACIZUMAB
     Route: 031
     Dates: start: 20230725, end: 20230725
  5. BEVACIZUMAB [Suspect]
     Active Substance: BEVACIZUMAB
     Route: 031
     Dates: start: 20230928, end: 20230928
  6. BEVACIZUMAB [Suspect]
     Active Substance: BEVACIZUMAB
     Route: 031
     Dates: start: 20231130, end: 20231130

REACTIONS (3)
  - Macular degeneration [Recovered/Resolved]
  - Drug ineffective [Recovered/Resolved]
  - Intentional product use issue [Unknown]

NARRATIVE: CASE EVENT DATE: 20230126
